FAERS Safety Report 8244161-5 (Version None)
Quarter: 2012Q1

REPORT INFORMATION
  Report Type: 
  Country: None (occurrence: None)
  Receive Date: 20120329
  Receipt Date: 20120320
  Transmission Date: 20120608
  Serious: Yes (Hospitalization, Other)
  Sender: FDA-Public Use
  Company Number: US-MERCK-1011USA02600

PATIENT
  Age: 50 Year
  Sex: Female

DRUGS (2)
  1. FOSAMAX [Suspect]
     Route: 048
     Dates: start: 20050801, end: 20050801
  2. FOSAMAX [Suspect]
     Indication: OSTEOPENIA
     Route: 048
     Dates: start: 20010901, end: 20050401

REACTIONS (109)
  - GALLBLADDER DISORDER [None]
  - ARTHRITIS [None]
  - FISTULA [None]
  - EPISTAXIS [None]
  - DYSPHAGIA [None]
  - PALPITATIONS [None]
  - OPEN WOUND [None]
  - OBESITY [None]
  - STRESS URINARY INCONTINENCE [None]
  - MUSCLE SPASMS [None]
  - HIRSUTISM [None]
  - BRONCHITIS [None]
  - ACUTE SINUSITIS [None]
  - SKIN CANCER [None]
  - ABDOMINAL PAIN UPPER [None]
  - ABDOMINAL PAIN [None]
  - BONE DISORDER [None]
  - LOOSE TOOTH [None]
  - LIMB INJURY [None]
  - NAUSEA [None]
  - TEMPOROMANDIBULAR JOINT SYNDROME [None]
  - BLEPHARITIS [None]
  - POLLAKIURIA [None]
  - TYPE 2 DIABETES MELLITUS [None]
  - RADICULITIS LUMBOSACRAL [None]
  - PRESBYOPIA [None]
  - HEAD INJURY [None]
  - ONYCHOMYCOSIS [None]
  - ANXIETY [None]
  - BURSA DISORDER [None]
  - CELLULITIS [None]
  - FIBROMATOSIS [None]
  - OCULAR HYPERTENSION [None]
  - VITAMIN D DEFICIENCY [None]
  - VENOUS THROMBOSIS [None]
  - TRANSAMINASES INCREASED [None]
  - MITRAL VALVE DISEASE [None]
  - HORMONE LEVEL ABNORMAL [None]
  - HEADACHE [None]
  - SYNOVIAL CYST [None]
  - CYST [None]
  - ARTERIOSCLEROSIS CORONARY ARTERY [None]
  - BENIGN NEOPLASM OF SKIN [None]
  - ARRHYTHMIA [None]
  - BENIGN NEOPLASM [None]
  - CONTUSION [None]
  - FUNGAL INFECTION [None]
  - EUSTACHIAN TUBE DYSFUNCTION [None]
  - EAR PAIN [None]
  - BLOOD LACTATE DEHYDROGENASE INCREASED [None]
  - OTITIS EXTERNA [None]
  - SJOGREN'S SYNDROME [None]
  - CATARACT [None]
  - ARTHROPATHY [None]
  - TOOTH FRACTURE [None]
  - RESPIRATORY FAILURE [None]
  - NASAL SEPTUM DEVIATION [None]
  - HAIR DISORDER [None]
  - METABOLIC SYNDROME [None]
  - SKIN DISCOLOURATION [None]
  - CARDIAC DISORDER [None]
  - CHEST PAIN [None]
  - FATIGUE [None]
  - FACIAL PAIN [None]
  - ARTHRALGIA [None]
  - OESOPHAGITIS [None]
  - TRANSIENT ISCHAEMIC ATTACK [None]
  - TOOTH DISORDER [None]
  - MIGRAINE [None]
  - DIZZINESS [None]
  - UPPER RESPIRATORY TRACT INFECTION [None]
  - OSTEONECROSIS OF JAW [None]
  - ACTINIC KERATOSIS [None]
  - BREAST DISORDER [None]
  - MALAISE [None]
  - INFECTED CYST [None]
  - SUPRAVENTRICULAR TACHYCARDIA [None]
  - OESOPHAGEAL SPASM [None]
  - SENSITIVITY OF TEETH [None]
  - ATROPHIC VULVOVAGINITIS [None]
  - UTERINE DISORDER [None]
  - VULVOVAGINITIS [None]
  - POST CONCUSSION SYNDROME [None]
  - GASTROINTESTINAL INFLAMMATION [None]
  - COUGH [None]
  - EXOSTOSIS [None]
  - TENDONITIS [None]
  - CONJUNCTIVITIS ALLERGIC [None]
  - CERUMEN IMPACTION [None]
  - EPICONDYLITIS [None]
  - INSOMNIA [None]
  - HYPERCHOLESTEROLAEMIA [None]
  - SWELLING [None]
  - DERMAL CYST [None]
  - SKIN PAPILLOMA [None]
  - URINARY TRACT INFECTION [None]
  - TOOTH ABSCESS [None]
  - TINNITUS [None]
  - ROSACEA [None]
  - RECTAL HAEMORRHAGE [None]
  - MELANOCYTIC NAEVUS [None]
  - MYOSITIS [None]
  - MYALGIA [None]
  - ASTIGMATISM [None]
  - NECK PAIN [None]
  - CHONDROPATHY [None]
  - SLEEP APNOEA SYNDROME [None]
  - WEIGHT DECREASED [None]
  - BORDERLINE GLAUCOMA [None]
